FAERS Safety Report 23821796 (Version 2)
Quarter: 2024Q2

REPORT INFORMATION
  Report Type: Report from Study
  Country: US (occurrence: US)
  Receive Date: 20240506
  Receipt Date: 20240621
  Transmission Date: 20240716
  Serious: Yes (Death)
  Sender: FDA-Public Use
  Company Number: US-ABBVIE-5745762

PATIENT
  Age: 82 Year
  Sex: Male
  Weight: 86 kg

DRUGS (1)
  1. LINZESS [Suspect]
     Active Substance: LINACLOTIDE
     Indication: Product used for unknown indication
     Dosage: FORM STRENGTH: 72 MICROGRAM?FREQUENCY TEXT: 1 CAPSULE ON AN EMPTY STOMACH IN A DAY
     Route: 048

REACTIONS (3)
  - Respiratory failure [Fatal]
  - Septic shock [Fatal]
  - Pain [Unknown]

NARRATIVE: CASE EVENT DATE: 20240430
